FAERS Safety Report 13698912 (Version 1)
Quarter: 2017Q2

REPORT INFORMATION
  Report Type: Spontaneous
  Country: US (occurrence: US)
  Receive Date: 20170628
  Receipt Date: 20170628
  Transmission Date: 20170830
  Serious: Yes (Other)
  Sender: FDA-Public Use
  Company Number: US-TEVA-780998USA

PATIENT
  Sex: Male

DRUGS (1)
  1. DORZOLAMIDE [Suspect]
     Active Substance: DORZOLAMIDE
     Indication: INTRAOCULAR PRESSURE INCREASED
     Dosage: 2%
     Route: 065

REACTIONS (5)
  - Paraesthesia [Unknown]
  - VIIIth nerve injury [Unknown]
  - Hypoaesthesia [Unknown]
  - Swelling face [Unknown]
  - Lip swelling [Unknown]
